FAERS Safety Report 7389011-4 (Version None)
Quarter: 2011Q2

REPORT INFORMATION
  Report Type: 
  Country: None (occurrence: None)
  Receive Date: 20110401
  Receipt Date: 20110329
  Transmission Date: 20111010
  Serious: Yes (Other)
  Sender: FDA-Public Use
  Company Number: US-PFIZER INC-2011009267

PATIENT
  Sex: Male
  Weight: 86 kg

DRUGS (2)
  1. CHANTIX [Suspect]
     Indication: SMOKING CESSATION THERAPY
     Dosage: 0.5 MG, 1X/DAY
     Route: 048
     Dates: start: 20110105, end: 20110101
  2. CHANTIX [Suspect]
     Dosage: 1 MG, 2X/DAY
     Route: 048
     Dates: start: 20110101, end: 20110325

REACTIONS (8)
  - AGITATION [None]
  - ANXIETY [None]
  - PHOTODERMATOSIS [None]
  - HOSTILITY [None]
  - MANIA [None]
  - DEPRESSION [None]
  - EMOTIONAL DISORDER [None]
  - PANIC ATTACK [None]
